FAERS Safety Report 25989759 (Version 2)
Quarter: 2025Q4

REPORT INFORMATION
  Report Type: Spontaneous
  Country: US (occurrence: US)
  Receive Date: 20251103
  Receipt Date: 20251105
  Transmission Date: 20260117
  Serious: No
  Sender: ABBVIE
  Company Number: US-ABBVIE-6527362

PATIENT
  Age: 35 Year
  Sex: Female
  Weight: 126.09 kg

DRUGS (1)
  1. LILETTA [Suspect]
     Active Substance: LEVONORGESTREL
     Indication: Contraception
     Dosage: EVERY 1 DAY?FORM STRENGTH: 52 MILLIGRAM
     Route: 015
     Dates: start: 20250905, end: 20251002

REACTIONS (1)
  - Device dislocation [Recovered/Resolved]

NARRATIVE: CASE EVENT DATE: 20251002
